FAERS Safety Report 15730664 (Version 2)
Quarter: 2019Q2

REPORT INFORMATION
  Report Type: Spontaneous
  Country: US (occurrence: US)
  Receive Date: 20181217
  Receipt Date: 20190412
  Transmission Date: 20190711
  Serious: Yes (Other)
  Sender: FDA-Public Use
  Company Number: US-SA-2018SA339983

PATIENT
  Age: 41 Year
  Sex: Female
  Weight: 80 kg

DRUGS (13)
  1. ASPRIN [Concomitant]
     Active Substance: ASPIRIN
  2. LASIX [Concomitant]
     Active Substance: FUROSEMIDE
  3. FLEXERIL [CEFIXIME] [Concomitant]
     Active Substance: CEFIXIME
  4. DOCETAXEL. [Suspect]
     Active Substance: DOCETAXEL
     Indication: BREAST CANCER FEMALE
     Dosage: 135 MG, Q3W
     Route: 042
     Dates: start: 20110221, end: 20110221
  5. TYLENOL [Concomitant]
     Active Substance: ACETAMINOPHEN
  6. DOCETAXEL. [Suspect]
     Active Substance: DOCETAXEL
     Dosage: 135 MG, Q3W
     Route: 042
     Dates: start: 20110607, end: 20110607
  7. CARVEDILOL. [Concomitant]
     Active Substance: CARVEDILOL
  8. POTASSIUM [Concomitant]
     Active Substance: POTASSIUM
  9. TRICOREX [Concomitant]
     Active Substance: AMBROXOL\GUAIFENESIN\TERBUTALINE
  10. NORCO [Concomitant]
     Active Substance: ACETAMINOPHEN\HYDROCODONE BITARTRATE
  11. NEOSAR [Concomitant]
     Active Substance: CYCLOPHOSPHAMIDE
  12. NEURONTIN [Concomitant]
     Active Substance: GABAPENTIN
  13. VENTOLINE [SALBUTAMOL] [Concomitant]
     Active Substance: ALBUTEROL SULFATE

REACTIONS (1)
  - Alopecia [Recovering/Resolving]

NARRATIVE: CASE EVENT DATE: 201203
